FAERS Safety Report 18688601 (Version 1)
Quarter: 2020Q4

REPORT INFORMATION
  Report Type: Spontaneous
  Country: US (occurrence: US)
  Receive Date: 20201230
  Receipt Date: 20201230
  Transmission Date: 20210114
  Serious: No
  Sender: FDA-Public Use
  Company Number: None

PATIENT
  Age: 29 Year
  Sex: Female
  Weight: 113.4 kg

DRUGS (2)
  1. CIMZIA [Suspect]
     Active Substance: CERTOLIZUMAB PEGOL
     Indication: PSORIATIC ARTHROPATHY
     Dosage: INJECT 400MG (2 SYRINGES) SUBCUTANEOUSLY  AT WEEKS  0, 2 AND 4   AS DIRECTED.
     Route: 058
     Dates: start: 202012
  2. CIMZIA [Suspect]
     Active Substance: CERTOLIZUMAB PEGOL
     Indication: RHEUMATOID ARTHRITIS
     Dosage: INJECT 400MG (2 SYRINGES) SUBCUTANEOUSLY  AT WEEKS  0, 2 AND 4   AS DIRECTED.
     Route: 058
     Dates: start: 202012

REACTIONS (3)
  - Maternal exposure during pregnancy [None]
  - Ear infection [None]
  - Urinary tract infection [None]
